FAERS Safety Report 12889643 (Version 2)
Quarter: 2016Q4

REPORT INFORMATION
  Report Type: Report from Study
  Country: US (occurrence: US)
  Receive Date: 20161027
  Receipt Date: 20161115
  Transmission Date: 20170207
  Serious: No
  Sender: FDA-Public Use
  Company Number: PHEH2016US027439

PATIENT
  Sex: Male

DRUGS (2)
  1. ENTRESTO [Suspect]
     Active Substance: SACUBITRIL\VALSARTAN
     Indication: PRODUCT USED FOR UNKNOWN INDICATION
     Dosage: 200 MG, UNK ( 97/103 MG)
     Route: 065
  2. ENTRESTO [Suspect]
     Active Substance: SACUBITRIL\VALSARTAN
     Dosage: 100 MG, QD (49/51 MG)
     Route: 065

REACTIONS (9)
  - Condition aggravated [Unknown]
  - Dyspnoea [Unknown]
  - Hypoaesthesia [Unknown]
  - Cerebrovascular disorder [Unknown]
  - Dizziness postural [Unknown]
  - Gait disturbance [Unknown]
  - Drug intolerance [Unknown]
  - Dizziness [Unknown]
  - Inappropriate schedule of drug administration [Unknown]
